FAERS Safety Report 8351297-7 (Version None)
Quarter: 2012Q2

REPORT INFORMATION
  Report Type: 
  Country: None (occurrence: None)
  Receive Date: 20120510
  Receipt Date: 20110603
  Transmission Date: 20120825
  Serious: No
  Sender: FDA-Public Use
  Company Number: US-TEVA-2011002820

PATIENT
  Sex: Male
  Weight: 67.192 kg

DRUGS (2)
  1. SAW PALMETTO [Concomitant]
  2. NUVIGIL [Suspect]
     Indication: NARCOLEPSY
     Dosage: 150 MILLIGRAM;
     Route: 048
     Dates: start: 20110201

REACTIONS (1)
  - PARAESTHESIA [None]
